FAERS Safety Report 21701820 (Version 5)
Quarter: 2024Q4

REPORT INFORMATION
  Report Type: Report from Study
  Country: US (occurrence: US)
  Receive Date: 20221208
  Receipt Date: 20241015
  Transmission Date: 20250115
  Serious: No
  Sender: NOVARTIS
  Company Number: US-002147023-NVSC2022US284996

PATIENT
  Sex: Female

DRUGS (1)
  1. COSENTYX [Suspect]
     Active Substance: SECUKINUMAB
     Indication: Psoriasis
     Dosage: UNK
     Route: 065

REACTIONS (3)
  - Injection site pain [Unknown]
  - Psoriasis [Unknown]
  - Rash macular [Unknown]
